FAERS Safety Report 12154637 (Version 1)
Quarter: 2016Q1

REPORT INFORMATION
  Report Type: Spontaneous
  Country: US (occurrence: None)
  Receive Date: 20160304
  Receipt Date: 20160304
  Transmission Date: 20160526
  Serious: Yes (Hospitalization)
  Sender: FDA-Public Use
  Company Number: None

PATIENT
  Age: 37 Year
  Sex: Female
  Weight: 89.6 kg

DRUGS (1)
  1. DOBUTAMINE [Suspect]
     Active Substance: DOBUTAMINE\DOBUTAMINE HYDROCHLORIDE
     Indication: STRESS ECHOCARDIOGRAM
     Dosage: CONTINUOUS INFUSIO INTRAVENOUS
     Route: 042
     Dates: start: 20160229, end: 20160229

REACTIONS (5)
  - Abdominal discomfort [None]
  - Stress cardiomyopathy [None]
  - Ejection fraction decreased [None]
  - Chest discomfort [None]
  - Musculoskeletal pain [None]

NARRATIVE: CASE EVENT DATE: 20160229
